FAERS Safety Report 13643065 (Version 1)
Quarter: 2017Q2

REPORT INFORMATION
  Report Type: Spontaneous
  Country: DE (occurrence: DE)
  Receive Date: 20170612
  Receipt Date: 20170612
  Transmission Date: 20170830
  Serious: Yes (Hospitalization)
  Sender: FDA-Public Use
  Company Number: DE-TEVA-774730GER

PATIENT
  Age: 53 Year
  Sex: Female

DRUGS (9)
  1. QUETIAPIN [Suspect]
     Active Substance: QUETIAPINE
     Route: 048
     Dates: start: 20170311, end: 20170314
  2. CANDESARTAN. [Concomitant]
     Active Substance: CANDESARTAN
     Route: 048
     Dates: start: 2012
  3. TRIMIPRAMIN [Suspect]
     Active Substance: TRIMIPRAMINE MALEATE
     Route: 048
     Dates: start: 20161215, end: 20170314
  4. NORTRIPTYLIN [Suspect]
     Active Substance: NORTRIPTYLINE
     Route: 048
     Dates: start: 20160215, end: 20170314
  5. LEVOTHYROXIN [Concomitant]
     Active Substance: LEVOTHYROXINE
     Route: 048
     Dates: start: 2011
  6. ATORVASTATIN [Concomitant]
     Active Substance: ATORVASTATIN
     Route: 048
     Dates: start: 2012
  7. ACETYLSALICYLIC ACID [Concomitant]
     Active Substance: ASPIRIN
     Route: 048
     Dates: start: 2015
  8. METFORMIN [Concomitant]
     Active Substance: METFORMIN HYDROCHLORIDE
     Route: 048
     Dates: start: 2013
  9. QUETIAPIN [Suspect]
     Active Substance: QUETIAPINE
     Route: 048
     Dates: start: 20170215, end: 20170310

REACTIONS (1)
  - Urinary hesitation [Recovered/Resolved]

NARRATIVE: CASE EVENT DATE: 20170314
